FAERS Safety Report 5896272-7 (Version None)
Quarter: 2008Q3

REPORT INFORMATION
  Report Type: 
  Country: None (occurrence: None)
  Receive Date: 20080924
  Receipt Date: 20070802
  Transmission Date: 20090109
  Serious: Yes (Other)
  Sender: FDA-Public Use
  Company Number: US-ASTRAZENECA-2007UW18648

PATIENT
  Age: 563 Month
  Sex: Female
  Weight: 70.3 kg

DRUGS (2)
  1. SEROQUEL [Suspect]
     Indication: DEPRESSION
     Dates: start: 20020601, end: 20030801
  2. SEROQUEL [Suspect]
     Indication: INSOMNIA
     Dates: start: 20020601, end: 20030801

REACTIONS (1)
  - PANCREATITIS [None]
